FAERS Safety Report 25079218 (Version 1)
Quarter: 2025Q1

REPORT INFORMATION
  Report Type: Spontaneous
  Country: US (occurrence: None)
  Receive Date: 20250314
  Receipt Date: 20250314
  Transmission Date: 20250408
  Serious: Yes (Hospitalization)
  Sender: FDA-CTU
  Company Number: None

PATIENT
  Sex: Male

DRUGS (2)
  1. GLEOSTINE [Suspect]
     Active Substance: LOMUSTINE
     Route: 048
     Dates: start: 202501
  2. GLEOSTINE [Suspect]
     Active Substance: LOMUSTINE
     Route: 048
     Dates: start: 202501

REACTIONS (4)
  - Seizure [None]
  - Vomiting [None]
  - Muscular weakness [None]
  - Confusional state [None]
